FAERS Safety Report 10661581 (Version 1)
Quarter: 2014Q4

REPORT INFORMATION
  Report Type: Spontaneous
  Country: GB (occurrence: None)
  Receive Date: 20141216
  Receipt Date: 20141216
  Transmission Date: 20150529
  Serious: Yes (Life-Threatening, Hospitalization, Other)
  Sender: FDA-Public Use
  Company Number: GB-2014VAL000628

PATIENT
  Age: 20 Year
  Sex: Male

DRUGS (2)
  1. CARBAMAZEPINE (CARBAMAZEPINE) UNKNOWN [Suspect]
     Active Substance: CARBAMAZEPINE
     Indication: PRODUCT USED FOR UNKNOWN INDICATION
     Dosage: UNK, SINGLE DOSE, NOT THE PRESCRIBED DOSE, ORAL
     Route: 048
  2. LEVETIRACETAM (LEVETIRACETAM) [Suspect]
     Active Substance: LEVETIRACETAM
     Indication: PRODUCT USED FOR UNKNOWN INDICATION
     Dosage: UNK, SINGLE DOSE, NOT THE PRESCRIBED DOSE, ORAL
     Route: 048

REACTIONS (8)
  - Dysarthria [None]
  - Confusional state [None]
  - Agitation [None]
  - Cardiac arrest [None]
  - Bundle branch block right [None]
  - Intentional overdose [None]
  - Ventricular fibrillation [None]
  - Generalised tonic-clonic seizure [None]
